FAERS Safety Report 8356734-X (Version None)
Quarter: 2012Q2

REPORT INFORMATION
  Report Type: 
  Country: None (occurrence: None)
  Receive Date: 20120514
  Receipt Date: 20120510
  Transmission Date: 20120825
  Serious: Yes (Hospitalization)
  Sender: FDA-Public Use
  Company Number: PHHY2012NL040308

PATIENT
  Sex: Male

DRUGS (3)
  1. ZOMETA [Suspect]
     Indication: PROSTATE CANCER METASTATIC
     Dosage: 4 MG/100 ML, 1X PER 21 DAYS
  2. ZOMETA [Suspect]
     Dosage: 4 MG/100 ML, 1X PER 21 DAYS
     Dates: start: 20120201
  3. ZOMETA [Suspect]
     Dosage: 4 MG/100 ML, 1X PER 21 DAYS
     Dates: start: 20111221

REACTIONS (1)
  - VASCULAR OCCLUSION [None]
